FAERS Safety Report 7446153-2 (Version None)
Quarter: 2011Q2

REPORT INFORMATION
  Report Type: 
  Country: None (occurrence: None)
  Receive Date: 20110429
  Receipt Date: 20110422
  Transmission Date: 20111010
  Serious: Yes (Hospitalization)
  Sender: FDA-Public Use
  Company Number: B0714822A

PATIENT
  Sex: Female

DRUGS (5)
  1. MALARONE [Suspect]
     Indication: MALARIA PROPHYLAXIS
     Dosage: 1TAB PER DAY
     Route: 048
     Dates: start: 20110201, end: 20110309
  2. TELZIR [Concomitant]
     Indication: HIV INFECTION
     Route: 048
  3. KIVEXA [Concomitant]
     Indication: HIV INFECTION
     Route: 048
  4. NORVIR [Concomitant]
     Indication: HIV INFECTION
     Route: 048
  5. YELLOW FEVER VACCINE [Concomitant]
     Indication: PROPHYLAXIS

REACTIONS (3)
  - FATIGUE [None]
  - NAUSEA [None]
  - CYTOLYTIC HEPATITIS [None]
